FAERS Safety Report 6224376-8 (Version None)
Quarter: 2009Q2

REPORT INFORMATION
  Report Type: 
  Country: None (occurrence: None)
  Receive Date: 20090612
  Receipt Date: 20090316
  Transmission Date: 20091009
  Serious: No
  Sender: FDA-Public Use
  Company Number: US-ABBOTT-09P-163-0563184-00

PATIENT
  Sex: Male
  Weight: 89.438 kg

DRUGS (7)
  1. HUMIRA [Suspect]
     Indication: CROHN'S DISEASE
     Route: 058
     Dates: start: 20090209, end: 20090209
  2. HUMIRA [Suspect]
     Route: 058
     Dates: start: 20090223, end: 20090223
  3. HUMIRA [Suspect]
     Route: 058
     Dates: start: 20090309
  4. CYMBALTA [Concomitant]
     Indication: DEPRESSION
     Route: 048
  5. TEKTURNA [Concomitant]
     Indication: HYPERTENSION
     Dosage: 300/12.5 MG, ORAL, 1 IN 1 D
  6. LIPITOR [Concomitant]
     Indication: BLOOD CHOLESTEROL INCREASED
     Route: 048
  7. TRICOR [Concomitant]
     Indication: BLOOD CHOLESTEROL INCREASED
     Route: 048

REACTIONS (2)
  - HEADACHE [None]
  - NAUSEA [None]
